FAERS Safety Report 12158292 (Version 1)
Quarter: 2016Q1

REPORT INFORMATION
  Report Type: Spontaneous
  Country: US (occurrence: US)
  Receive Date: 20160308
  Receipt Date: 20160308
  Transmission Date: 20160526
  Serious: No
  Sender: FDA-Public Use
  Company Number: US-JNJFOC-20150310934

PATIENT
  Age: 74 Year
  Sex: Male

DRUGS (6)
  1. IMBRUVICA [Suspect]
     Active Substance: IBRUTINIB
     Indication: CHRONIC LYMPHOCYTIC LEUKAEMIA
     Route: 048
     Dates: start: 20150204
  2. ASPIRIN. [Concomitant]
     Active Substance: ASPIRIN
  3. NASONEX [Concomitant]
     Active Substance: MOMETASONE FUROATE
  4. ACYCLOVIR. [Concomitant]
     Active Substance: ACYCLOVIR
  5. SIMVASTATIN. [Concomitant]
     Active Substance: SIMVASTATIN
  6. ALLOPURINOL. [Concomitant]
     Active Substance: ALLOPURINOL

REACTIONS (6)
  - Pyrexia [Recovered/Resolved]
  - Vomiting [Unknown]
  - Chills [Unknown]
  - Muscular weakness [Unknown]
  - Diarrhoea [Unknown]
  - Eating disorder [Unknown]

NARRATIVE: CASE EVENT DATE: 2015
